FAERS Safety Report 8847793 (Version 2)
Quarter: 2012Q4

REPORT INFORMATION
  Report Type: Report from Study
  Country: US (occurrence: US)
  Receive Date: 20121018
  Receipt Date: 20121031
  Transmission Date: 20130627
  Serious: Yes (Disabling)
  Sender: FDA-Public Use
  Company Number: US-ABBOTT-12P-163-0991239-00

PATIENT
  Age: 39 None
  Sex: Female
  Weight: 108.96 kg

DRUGS (8)
  1. HUMIRA [Suspect]
     Indication: CROHN^S DISEASE
     Dates: start: 201010, end: 201110
  2. HUMIRA [Suspect]
     Dates: end: 201209
  3. METHOTREXATE [Concomitant]
     Indication: CROHN^S DISEASE
  4. PREDNISONE [Concomitant]
     Indication: PRODUCT USED FOR UNKNOWN INDICATION
  5. PREDNISOLONE EYE DROPS [Concomitant]
     Indication: IRITIS
     Dosage: Eye drops
  6. OMEPRAZOLE [Concomitant]
     Indication: GASTROOESOPHAGEAL REFLUX DISEASE
  7. CITALOPRAM [Concomitant]
     Indication: ANXIETY
  8. CITALOPRAM [Concomitant]
     Indication: DEPRESSION

REACTIONS (13)
  - Lupus-like syndrome [Unknown]
  - Lupus-like syndrome [Recovered/Resolved]
  - Arthralgia [Recovered/Resolved]
  - Asthenia [Recovered/Resolved]
  - Tendon pain [Recovered/Resolved]
  - Butterfly rash [Recovered/Resolved]
  - Oedema peripheral [Recovered/Resolved]
  - Abasia [Recovered/Resolved]
  - Crohn^s disease [Not Recovered/Not Resolved]
  - Iritis [Not Recovered/Not Resolved]
  - Weight increased [Unknown]
  - Antinuclear antibody positive [Unknown]
  - Activities of daily living impaired [Recovered/Resolved]
